FAERS Safety Report 8109563-6 (Version None)
Quarter: 2012Q1

REPORT INFORMATION
  Report Type: 
  Country: None (occurrence: None)
  Receive Date: 20120202
  Receipt Date: 20120130
  Transmission Date: 20120608
  Serious: Yes (Other)
  Sender: FDA-Public Use
  Company Number: US-PFIZER INC-2012025345

PATIENT
  Sex: Female
  Weight: 93.878 kg

DRUGS (7)
  1. CELEXA [Concomitant]
     Dosage: UNK
  2. METFORMIN/PIOGLITAZONE [Concomitant]
     Dosage: UNK
  3. VALIUM [Concomitant]
     Dosage: UNK
  4. ZYPREXA [Concomitant]
     Dosage: UNK
  5. HYDROCODONE [Concomitant]
     Dosage: UNK
  6. LYRICA [Suspect]
     Indication: FIBROMYALGIA
     Dosage: 75 MG, 3X/DAY
     Route: 048
     Dates: start: 20070101
  7. LISINOPRIL [Concomitant]
     Dosage: 20 MG, UNK

REACTIONS (1)
  - INTERVERTEBRAL DISC PROTRUSION [None]
